FAERS Safety Report 12435294 (Version 1)
Quarter: 2016Q2

REPORT INFORMATION
  Report Type: Spontaneous
  Country: US (occurrence: US)
  Receive Date: 20160603
  Receipt Date: 20160603
  Transmission Date: 20160815
  Serious: Yes (Other)
  Sender: FDA-Public Use
  Company Number: US-ROCHE-1657966

PATIENT
  Age: 68 Year
  Sex: Male

DRUGS (7)
  1. CLOBETASOL PROPIONATE. [Concomitant]
     Active Substance: CLOBETASOL PROPIONATE
  2. PRAVASTATIN SODIUM. [Concomitant]
     Active Substance: PRAVASTATIN SODIUM
  3. FOLIC ACID. [Concomitant]
     Active Substance: FOLIC ACID
  4. FLUTICASONE PROPIONATE. [Concomitant]
     Active Substance: FLUTICASONE PROPIONATE
  5. METHOTREXATE [Concomitant]
     Active Substance: METHOTREXATE
  6. ACTEMRA [Suspect]
     Active Substance: TOCILIZUMAB
     Indication: RHEUMATOID ARTHRITIS
     Route: 058
  7. VITAMIN D3 COMPLETE [Concomitant]

REACTIONS (10)
  - Rash [Unknown]
  - Arthralgia [Unknown]
  - Flatulence [Unknown]
  - Drug dose omission [Unknown]
  - Weight decreased [Unknown]
  - Cough [Unknown]
  - Helicobacter infection [Unknown]
  - Influenza [Unknown]
  - Dizziness [Unknown]
  - Pain [Unknown]
